FAERS Safety Report 25107358 (Version 1)
Quarter: 2025Q1

REPORT INFORMATION
  Report Type: Spontaneous
  Country: US (occurrence: US)
  Receive Date: 20250321
  Receipt Date: 20250321
  Transmission Date: 20250409
  Serious: No
  Sender: MERCK SHARP & DOHME LLC
  Company Number: US-009507513-2267144

PATIENT
  Sex: Female

DRUGS (2)
  1. VERQUVO [Suspect]
     Active Substance: VERICIGUAT
     Route: 048
     Dates: start: 202502, end: 2025
  2. VERQUVO [Suspect]
     Active Substance: VERICIGUAT
     Route: 048
     Dates: start: 2025, end: 2025

REACTIONS (3)
  - Rash [Unknown]
  - Flushing [Unknown]
  - Ejection fraction abnormal [Unknown]

NARRATIVE: CASE EVENT DATE: 20250101
